FAERS Safety Report 9305700 (Version 1)
Quarter: 2013Q2

REPORT INFORMATION
  Report Type: Spontaneous
  Country: US (occurrence: US)
  Receive Date: 20130522
  Receipt Date: 20130522
  Transmission Date: 20140414
  Serious: Yes (Death, Other)
  Sender: FDA-Public Use
  Company Number: US-RB-054004-13

PATIENT
  Sex: Female

DRUGS (5)
  1. SUBUTEX [Suspect]
     Indication: DRUG DEPENDENCE
     Route: 060
  2. SUBUTEX [Suspect]
     Dosage: UNKNOWN DOSAGE DETAILS; OBTAINED FROM STREET
     Route: 065
  3. CHEMOTHERAPY DRUGS [Suspect]
     Indication: UTERINE CANCER
     Dosage: UNKNOWN DOSING DETAILS
     Route: 065
  4. CHEMOTHERAPY DRUGS [Suspect]
     Indication: UTERINE CANCER
     Dosage: UNKNOWN DOSING DETAILS
     Route: 065
  5. FERTILITY DRUGS [Concomitant]
     Indication: PRODUCT USED FOR UNKNOWN INDICATION
     Dosage: UNKNOWN DOSAGE DETAILS
     Route: 065

REACTIONS (7)
  - Uterine cancer [Recovered/Resolved]
  - Ovarian cancer recurrent [Recovered/Resolved]
  - Road traffic accident [Recovered/Resolved]
  - White blood cell count increased [Unknown]
  - Exposure during pregnancy [Recovered/Resolved]
  - Abortion spontaneous [Recovered/Resolved]
  - Substance abuse [Recovered/Resolved]
